FAERS Safety Report 4900126-X (Version None)
Quarter: 2006Q1

REPORT INFORMATION
  Report Type: 
  Country: None (occurrence: None)
  Receive Date: 20060203
  Receipt Date: 20051118
  Transmission Date: 20060701
  Serious: Yes (Other)
  Sender: FDA-Public Use
  Company Number: JP-AVENTIS-200513463JP

PATIENT
  Age: 67 Year
  Sex: Male
  Weight: 60 kg

DRUGS (12)
  1. TAXOTERE [Suspect]
     Indication: LUNG ADENOCARCINOMA STAGE IV
     Route: 041
     Dates: start: 20051027, end: 20051027
  2. ANTINEOPLASTIC AND IMMUNOSUPPRESSIVE AGENTS [Suspect]
     Indication: LUNG ADENOCARCINOMA STAGE IV
     Route: 048
     Dates: start: 20051027, end: 20051109
  3. ALEVIATIN [Suspect]
     Indication: CONVULSION
     Route: 048
     Dates: start: 20051001, end: 20051116
  4. GLIMICRON [Concomitant]
     Route: 048
     Dates: start: 20051001
  5. SERMION [Concomitant]
     Indication: POOR PERIPHERAL CIRCULATION
     Route: 048
     Dates: start: 20051001
  6. CYANOCOBALAMIN [Concomitant]
     Indication: CONVULSION
     Route: 048
     Dates: start: 20051001
  7. NIVADIL [Concomitant]
     Indication: HYPERTENSION
     Route: 048
     Dates: start: 20051001
  8. RENIVACE [Concomitant]
     Indication: HYPERTENSION
     Route: 048
     Dates: start: 20051001
  9. PANALDINE [Concomitant]
     Indication: THROMBOSIS
     Route: 048
     Dates: start: 20051001
  10. GLUFAST [Concomitant]
     Indication: HYPOGLYCAEMIA
     Route: 048
     Dates: start: 20051001
  11. DECADRON [Concomitant]
     Indication: PREMEDICATION
     Dates: start: 20051027, end: 20051027
  12. SEROTONE [Concomitant]
     Indication: PREMEDICATION
     Dates: start: 20051027, end: 20051027

REACTIONS (3)
  - CEREBELLAR ATAXIA [None]
  - DRUG TOXICITY [None]
  - TREMOR [None]
